FAERS Safety Report 15397096 (Version 1)
Quarter: 2018Q3

REPORT INFORMATION
  Report Type: Other
  Country: US (occurrence: US)
  Receive Date: 20180918
  Receipt Date: 20180918
  Transmission Date: 20181010
  Serious: No
  Sender: FDA-Public Use
  Company Number: US-LEADIANT BIOSCIENCES INC-2018STPI000337

PATIENT
  Sex: Male

DRUGS (8)
  1. APTIOM [Concomitant]
     Active Substance: ESLICARBAZEPINE ACETATE
  2. CALCITRIOL. [Concomitant]
     Active Substance: CALCITRIOL
  3. FISH OIL [Concomitant]
     Active Substance: FISH OIL
  4. GLEOSTINE [Concomitant]
     Active Substance: LOMUSTINE
  5. SYNTHROID [Concomitant]
     Active Substance: LEVOTHYROXINE SODIUM
  6. TYLENOL [Concomitant]
     Active Substance: ACETAMINOPHEN
  7. MATULANE [Suspect]
     Active Substance: PROCARBAZINE HYDROCHLORIDE
     Indication: BRAIN NEOPLASM MALIGNANT
     Dosage: 50 MG, AS DIRECTED
     Route: 048
     Dates: start: 20171230
  8. VITAMIN B12 [Concomitant]
     Active Substance: CYANOCOBALAMIN

REACTIONS (1)
  - Urticaria [Not Recovered/Not Resolved]
